FAERS Safety Report 18596018 (Version 1)
Quarter: 2020Q4

REPORT INFORMATION
  Report Type: Spontaneous
  Country: US (occurrence: US)
  Receive Date: 20201209
  Receipt Date: 20201209
  Transmission Date: 20210114
  Serious: Yes (Other)
  Sender: FDA-Public Use
  Company Number: US-SUPERNUS PHARMACEUTICALS, INC.-2020SUP00526

PATIENT
  Sex: Female
  Weight: 44 kg

DRUGS (11)
  1. BUTALBITAL [Concomitant]
     Active Substance: BUTALBITAL
  2. HYDROCODONE [Concomitant]
     Active Substance: HYDROCODONE
  3. UBRELVY [Concomitant]
     Active Substance: UBROGEPANT
  4. ZOLOFT [Concomitant]
     Active Substance: SERTRALINE HYDROCHLORIDE
     Dosage: 50 MG, 1X/DAY
  5. UNSPECIFIED MULTIVITAMIN [Concomitant]
  6. ACETAMINOPHEN. [Concomitant]
     Active Substance: ACETAMINOPHEN
  7. TROKENDI XR [Suspect]
     Active Substance: TOPIRAMATE
     Indication: MIGRAINE PROPHYLAXIS
     Dosage: 50 MG, 1X/DAY
     Route: 048
  8. LEVOTHYROXINE. [Concomitant]
     Active Substance: LEVOTHYROXINE
  9. BIOTIN [Concomitant]
     Active Substance: BIOTIN
  10. AMITIZA [Concomitant]
     Active Substance: LUBIPROSTONE
  11. CLARITIN [Concomitant]
     Active Substance: LORATADINE

REACTIONS (1)
  - Nephrolithiasis [Recovered/Resolved]
